FAERS Safety Report 8581635-1 (Version None)
Quarter: 2012Q3

REPORT INFORMATION
  Report Type: 
  Country: None (occurrence: None)
  Receive Date: 20120809
  Receipt Date: 20120731
  Transmission Date: 20120928
  Serious: Yes (Other)
  Sender: FDA-Public Use
  Company Number: CO-ASTRAZENECA-2012SE55005

PATIENT
  Age: 39 Year
  Sex: Female

DRUGS (6)
  1. METOCLOPRAMIDE [Suspect]
     Indication: DIZZINESS
     Route: 030
     Dates: start: 20120707, end: 20120707
  2. SEROQUEL [Suspect]
     Route: 048
     Dates: start: 20110801, end: 20120707
  3. SEROQUEL [Suspect]
     Indication: BIPOLAR DISORDER
     Route: 048
  4. PAROXETINE [Concomitant]
     Indication: DEPRESSION
     Route: 048
     Dates: start: 19980801
  5. VITAMIN TAB [Concomitant]
     Route: 048
  6. SEROQUEL [Suspect]
     Route: 048
     Dates: start: 20120708

REACTIONS (3)
  - ANXIETY [None]
  - EXTRAPYRAMIDAL DISORDER [None]
  - DRUG DOSE OMISSION [None]
